FAERS Safety Report 19501974 (Version 3)
Quarter: 2023Q2

REPORT INFORMATION
  Report Type: Report from Study
  Country: DE (occurrence: DE)
  Receive Date: 20210707
  Receipt Date: 20230524
  Transmission Date: 20230722
  Serious: Yes (Other)
  Sender: FDA-Public Use
  Company Number: DE-NOVARTISPH-NVSC2020DE331313

PATIENT
  Age: 66 Year
  Sex: Male
  Weight: 72.9 kg

DRUGS (68)
  1. OXALIPLATIN [Suspect]
     Active Substance: OXALIPLATIN
     Indication: Plasma cell myeloma refractory
     Dosage: 251 MG ONCE
     Route: 042
     Dates: start: 20201113
  2. RITUXIMAB [Suspect]
     Active Substance: RITUXIMAB
     Indication: Plasma cell myeloma refractory
     Dosage: 723.75 MG ONCE
     Route: 042
     Dates: start: 20201111
  3. CYTARABINE [Suspect]
     Active Substance: CYTARABINE
     Indication: Plasma cell myeloma refractory
     Dosage: 7720 MG, BID
     Route: 042
     Dates: start: 20201114
  4. FUROSEMIDE [Concomitant]
     Active Substance: FUROSEMIDE
     Indication: Oedema peripheral
     Dosage: UNK
     Route: 065
     Dates: start: 20201110, end: 20201110
  5. FUROSEMIDE [Concomitant]
     Active Substance: FUROSEMIDE
     Indication: Anuria
     Dosage: UNK
     Route: 065
     Dates: start: 20201120, end: 20201121
  6. FUROSEMIDE [Concomitant]
     Active Substance: FUROSEMIDE
     Indication: Dyspnoea
     Dosage: UNK
     Route: 065
     Dates: start: 20201122, end: 20201123
  7. FUROSEMIDE [Concomitant]
     Active Substance: FUROSEMIDE
     Dosage: UNK
     Route: 065
     Dates: start: 20201206, end: 20201206
  8. FUROSEMIDE [Concomitant]
     Active Substance: FUROSEMIDE
     Dosage: UNK
     Route: 065
     Dates: start: 20201207, end: 20201209
  9. FUROSEMIDE [Concomitant]
     Active Substance: FUROSEMIDE
     Dosage: UNK
     Route: 065
     Dates: start: 20201211, end: 20201211
  10. FUROSEMIDE [Concomitant]
     Active Substance: FUROSEMIDE
     Dosage: UNK
     Route: 065
     Dates: start: 20201214, end: 20201214
  11. PREDNISOLONE SODIUM SUCCINATE [Concomitant]
     Active Substance: PREDNISOLONE SODIUM SUCCINATE
     Indication: Premedication
     Dosage: UNK
     Route: 065
     Dates: start: 20201110, end: 20201111
  12. PREDNISOLONE SODIUM SUCCINATE [Concomitant]
     Active Substance: PREDNISOLONE SODIUM SUCCINATE
     Indication: Dyspnoea
     Dosage: UNK
     Route: 065
     Dates: start: 20201116, end: 20201116
  13. PREDNISOLONE SODIUM SUCCINATE [Concomitant]
     Active Substance: PREDNISOLONE SODIUM SUCCINATE
     Dosage: UNK
     Route: 065
     Dates: start: 20201211, end: 20201211
  14. JONOSTERIL [Concomitant]
     Indication: Prophylaxis
     Dosage: UNK
     Route: 065
     Dates: start: 20201120, end: 20201121
  15. JONOSTERIL [Concomitant]
     Dosage: UNK
     Route: 065
     Dates: start: 20201124, end: 20201126
  16. JONOSTERIL [Concomitant]
     Dosage: UNK
     Route: 065
     Dates: start: 20201203, end: 20201203
  17. JONOSTERIL [Concomitant]
     Dosage: UNK
     Route: 065
     Dates: start: 20201204, end: 20201206
  18. JONOSTERIL [Concomitant]
     Dosage: UNK
     Route: 065
     Dates: start: 20201207, end: 20201207
  19. JONOSTERIL [Concomitant]
     Dosage: UNK
     Route: 065
     Dates: start: 20201208, end: 20201208
  20. JONOSTERIL [Concomitant]
     Dosage: UNK
     Route: 065
     Dates: start: 20201209, end: 20201210
  21. JONOSTERIL [Concomitant]
     Dosage: UNK
     Route: 065
     Dates: start: 20201211, end: 20201212
  22. PIPERACILLIN SODIUM\TAZOBACTAM SODIUM [Concomitant]
     Active Substance: PIPERACILLIN SODIUM\TAZOBACTAM SODIUM
     Indication: Prophylaxis
     Dosage: UNK
     Route: 065
     Dates: start: 20201211, end: 20201211
  23. ALLOPURINOL [Concomitant]
     Active Substance: ALLOPURINOL
     Indication: Prophylaxis
     Dosage: UNK
     Route: 065
     Dates: start: 20201128, end: 20201213
  24. EMEND [Concomitant]
     Active Substance: APREPITANT
     Indication: Prophylaxis of nausea and vomiting
     Dosage: UNK
     Route: 065
     Dates: start: 20201206, end: 20201207
  25. ONDANSETRON [Concomitant]
     Active Substance: ONDANSETRON
     Indication: Prophylaxis of nausea and vomiting
     Dosage: UNK
     Route: 065
     Dates: start: 20201206, end: 20201208
  26. PANTOPRAZOLE SODIUM [Concomitant]
     Active Substance: PANTOPRAZOLE SODIUM
     Indication: Prophylaxis
     Dosage: UNK
     Route: 065
     Dates: start: 20201120, end: 20201202
  27. DEXAMETHASONE SODIUM PHOSPHATE [Concomitant]
     Active Substance: DEXAMETHASONE SODIUM PHOSPHATE
     Indication: Prophylaxis
     Dosage: UNK
     Route: 065
     Dates: start: 20201206, end: 20201207
  28. AMLODIPINE BESYLATE [Concomitant]
     Active Substance: AMLODIPINE BESYLATE
     Indication: Hypertension
     Dosage: UNK
     Route: 065
     Dates: start: 20201120, end: 20201120
  29. AMLODIPINE BESYLATE [Concomitant]
     Active Substance: AMLODIPINE BESYLATE
     Dosage: UNK
     Route: 065
     Dates: start: 20201121, end: 20201202
  30. AMLODIPINE BESYLATE [Concomitant]
     Active Substance: AMLODIPINE BESYLATE
     Dosage: UNK
     Route: 065
     Dates: start: 20201211, end: 20201211
  31. CARVEDILOL [Concomitant]
     Active Substance: CARVEDILOL
     Indication: Hypertension
     Dosage: UNK
     Route: 065
     Dates: start: 20201211, end: 20201211
  32. MORPHINE [Concomitant]
     Active Substance: MORPHINE
     Indication: Pain
     Dosage: UNK
     Route: 065
     Dates: start: 20201211, end: 20201211
  33. DOXAZOSIN MESYLATE [Concomitant]
     Active Substance: DOXAZOSIN MESYLATE
     Indication: Hypertension
     Dosage: UNK
     Route: 065
     Dates: start: 20201211, end: 20201211
  34. POTASSIUM CHLORIDE [Concomitant]
     Active Substance: POTASSIUM CHLORIDE
     Indication: Hypokalaemia
     Dosage: UNK
     Route: 065
     Dates: start: 20201122, end: 20201123
  35. POTASSIUM CHLORIDE [Concomitant]
     Active Substance: POTASSIUM CHLORIDE
     Indication: Prophylaxis
     Dosage: UNK
     Route: 065
     Dates: start: 20201124, end: 20201125
  36. POTASSIUM CHLORIDE [Concomitant]
     Active Substance: POTASSIUM CHLORIDE
     Dosage: UNK
     Route: 065
     Dates: start: 20201126, end: 20201202
  37. POTASSIUM CHLORIDE [Concomitant]
     Active Substance: POTASSIUM CHLORIDE
     Dosage: UNK
     Route: 065
     Dates: start: 20201206, end: 20201208
  38. POTASSIUM PHOSPHATE, MONOBASIC\SODIUM PHOSPHATE, DIBASIC, ANHYDROUS [Concomitant]
     Active Substance: POTASSIUM PHOSPHATE, MONOBASIC\SODIUM PHOSPHATE, DIBASIC, ANHYDROUS
     Indication: Hypophosphataemia
     Dosage: UNK
     Route: 065
     Dates: start: 20201123, end: 20201123
  39. POTASSIUM PHOSPHATE, MONOBASIC\SODIUM PHOSPHATE, DIBASIC, ANHYDROUS [Concomitant]
     Active Substance: POTASSIUM PHOSPHATE, MONOBASIC\SODIUM PHOSPHATE, DIBASIC, ANHYDROUS
     Dosage: UNK
     Route: 065
     Dates: start: 20201124, end: 20201202
  40. POTASSIUM PHOSPHATE, MONOBASIC\SODIUM PHOSPHATE, DIBASIC, ANHYDROUS [Concomitant]
     Active Substance: POTASSIUM PHOSPHATE, MONOBASIC\SODIUM PHOSPHATE, DIBASIC, ANHYDROUS
     Dosage: UNK
     Route: 065
     Dates: start: 20201204, end: 20201204
  41. POTASSIUM PHOSPHATE, MONOBASIC\SODIUM PHOSPHATE, DIBASIC, ANHYDROUS [Concomitant]
     Active Substance: POTASSIUM PHOSPHATE, MONOBASIC\SODIUM PHOSPHATE, DIBASIC, ANHYDROUS
     Dosage: UNK
     Route: 065
     Dates: start: 20201206, end: 20201206
  42. MAGNESIUM [Concomitant]
     Active Substance: MAGNESIUM
     Indication: Hypomagnesaemia
     Dosage: UNK
     Route: 065
     Dates: start: 20201127, end: 20201202
  43. NATRIUMGLYCEROPHOSPHAT [Concomitant]
     Indication: Prophylaxis
     Dosage: UNK
     Route: 065
     Dates: start: 20201206, end: 20201207
  44. NATRIUMGLYCEROPHOSPHAT [Concomitant]
     Indication: Tumour lysis syndrome
     Dosage: UNK
     Route: 065
     Dates: start: 20201203, end: 20201203
  45. CIMETIDIN [Concomitant]
     Indication: Premedication
     Dosage: UNK
     Route: 065
     Dates: start: 20201204, end: 20201204
  46. ACETAMINOPHEN [Concomitant]
     Active Substance: ACETAMINOPHEN
     Indication: Premedication
     Dosage: UNK
     Route: 065
     Dates: start: 20201204, end: 20201204
  47. PREDNISOLONE [Concomitant]
     Active Substance: PREDNISOLONE
     Indication: Premedication
     Dosage: UNK
     Route: 065
     Dates: start: 20201204, end: 20201204
  48. CALCIUM [Concomitant]
     Active Substance: CALCIUM
     Indication: Hypocalcaemia
     Dosage: UNK
     Route: 065
     Dates: start: 20201206, end: 20201206
  49. CALCIUM [Concomitant]
     Active Substance: CALCIUM
     Indication: Prophylaxis
     Dosage: UNK
     Route: 065
     Dates: start: 20201207, end: 20201207
  50. CALCIUM [Concomitant]
     Active Substance: CALCIUM
     Indication: Tumour lysis syndrome
     Dosage: UNK
     Route: 065
     Dates: start: 20201208, end: 20201210
  51. CALCIUM [Concomitant]
     Active Substance: CALCIUM
     Dosage: UNK
     Route: 065
     Dates: start: 20201211, end: 20201211
  52. DIMETHINDENE [Concomitant]
     Active Substance: DIMETHINDENE
     Indication: Premedication
     Dosage: UNK
     Route: 065
     Dates: start: 20201116, end: 20201116
  53. DIMETHINDENE [Concomitant]
     Active Substance: DIMETHINDENE
     Indication: Dyspnoea
     Dosage: UNK
     Route: 065
     Dates: start: 20201204, end: 20201204
  54. DIMETHINDENE [Concomitant]
     Active Substance: DIMETHINDENE
     Dosage: UNK
     Route: 065
     Dates: start: 20201211, end: 20201211
  55. HYDROCHLOROTHIAZIDE [Concomitant]
     Active Substance: HYDROCHLOROTHIAZIDE
     Indication: Oedema peripheral
     Dosage: UNK
     Route: 065
     Dates: start: 20201206, end: 20201211
  56. CALCIUM GLUCONATE [Concomitant]
     Active Substance: CALCIUM GLUCONATE
     Indication: Hypocalcaemia
     Dosage: UNK
     Route: 065
     Dates: start: 20201208, end: 20201210
  57. CALCIUM GLUCONATE [Concomitant]
     Active Substance: CALCIUM GLUCONATE
     Indication: Tumour lysis syndrome
  58. ALBUMIN HUMAN [Concomitant]
     Active Substance: ALBUMIN HUMAN
     Indication: Prophylaxis
     Dosage: UNK
     Route: 065
     Dates: start: 20201208, end: 20201210
  59. NEUPOGEN [Concomitant]
     Active Substance: FILGRASTIM
     Indication: Haematopoietic stem cell mobilisation
     Dosage: UNK
     Route: 065
     Dates: start: 20201209, end: 20201210
  60. CARBIMAZOLE [Concomitant]
     Active Substance: CARBIMAZOLE
     Indication: Hyperthyroidism
     Dosage: UNK
     Route: 065
     Dates: start: 20201211, end: 20201211
  61. CITIDINE [Concomitant]
     Indication: Premedication
     Dosage: UNK
     Route: 065
     Dates: start: 20201211, end: 20201211
  62. CLARITHROMYCIN [Concomitant]
     Active Substance: CLARITHROMYCIN
     Indication: Prophylaxis
     Dosage: UNK
     Route: 065
     Dates: start: 20201211, end: 20201211
  63. FIBRINOGEN [Concomitant]
     Active Substance: FIBRINOGEN HUMAN
     Indication: Haemoptysis
     Dosage: UNK
     Route: 065
     Dates: start: 20201211, end: 20201211
  64. SODIUM PERCHLORATE [Concomitant]
     Active Substance: SODIUM PERCHLORATE
     Indication: Hyperthyroidism
     Dosage: UNK
     Route: 065
     Dates: start: 20201211, end: 20201211
  65. URAPIDIL [Concomitant]
     Active Substance: URAPIDIL
     Indication: Hypertension
     Dosage: UNK
     Route: 065
     Dates: start: 20201211, end: 20201211
  66. PANTOZOL [Concomitant]
     Active Substance: PANTOPRAZOLE SODIUM
     Indication: Prophylaxis
     Dosage: UNK
     Route: 065
     Dates: start: 20201211, end: 20201211
  67. MANNITOL [Concomitant]
     Active Substance: MANNITOL
     Indication: Prophylaxis
     Dosage: UNK
     Route: 065
     Dates: start: 20201205, end: 20201205
  68. PREDNISOLONE SODIUM SUCCINATE [Concomitant]
     Active Substance: PREDNISOLONE SODIUM SUCCINATE
     Indication: Product used for unknown indication
     Dosage: UNK
     Route: 065
     Dates: start: 20200305, end: 20200623

REACTIONS (1)
  - Dyspnoea [Recovered/Resolved]

NARRATIVE: CASE EVENT DATE: 20201211
